FAERS Safety Report 5879662-8 (Version None)
Quarter: 2008Q3

REPORT INFORMATION
  Report Type: 
  Country: None (occurrence: None)
  Receive Date: 20080912
  Receipt Date: 20080902
  Transmission Date: 20090109
  Serious: Yes (Death, Disabling)
  Sender: FDA-Public Use
  Company Number: CM-MERCK-91090162

PATIENT
  Age: 37 Year
  Sex: Male

DRUGS (2)
  1. STROMECTOL [Suspect]
     Indication: ONCHOCERCIASIS
     Route: 048
     Dates: start: 19910730
  2. ETHANOL [Concomitant]
     Route: 065
     Dates: start: 19910730, end: 19910730

REACTIONS (11)
  - ASTHENIA [None]
  - ATAXIA [None]
  - COMA [None]
  - DEATH [None]
  - DYSARTHRIA [None]
  - ENCEPHALITIS [None]
  - HEADACHE [None]
  - INFECTION PARASITIC [None]
  - MENTAL IMPAIRMENT [None]
  - PYREXIA [None]
  - RED BLOOD CELL SEDIMENTATION RATE INCREASED [None]
